FAERS Safety Report 4568257-4 (Version None)
Quarter: 2005Q1

REPORT INFORMATION
  Report Type: 
  Country: None (occurrence: None)
  Receive Date: 20050202
  Receipt Date: 20041223
  Transmission Date: 20050727
  Serious: Yes (Hospitalization)
  Sender: FDA-Public Use
  Company Number: US-BRISTOL-MYERS SQUIBB COMPANY-12806410

PATIENT
  Age: 87 Year
  Sex: Female

DRUGS (8)
  1. SINEMET CR [Suspect]
     Indication: PARKINSON'S DISEASE
     Dosage: 21-JAN-2004: 6 BOTTLES; 09-JUN-2004: 5 BOTTLES; 27-JUL-2004: 3 BOTTLES; 25-OCT-2004: 3 BOTTLES
     Route: 048
     Dates: start: 20040702, end: 20040720
  2. LANOXIN [Concomitant]
  3. ATENOLOL [Concomitant]
  4. XALATAN [Concomitant]
  5. PREVACID [Concomitant]
  6. MULTIVITAMIN [Concomitant]
  7. NASACORT [Concomitant]
  8. SMOOTH MOVE [Concomitant]

REACTIONS (10)
  - ASTHENIA [None]
  - CHOREA [None]
  - DEHYDRATION [None]
  - DRUG TOXICITY [None]
  - DYSARTHRIA [None]
  - DYSKINESIA [None]
  - DYSPHAGIA [None]
  - MEDICATION ERROR [None]
  - MYOCLONUS [None]
  - NAUSEA [None]
